FAERS Safety Report 24727706 (Version 2)
Quarter: 2025Q1

REPORT INFORMATION
  Report Type: Spontaneous
  Country: DK (occurrence: DK)
  Receive Date: 20241212
  Receipt Date: 20250108
  Transmission Date: 20250408
  Serious: Yes (Hospitalization, Other)
  Sender: ALEXION PHARMACEUTICALS
  Company Number: DK-ORESUND-24OPAZA0577P

PATIENT
  Age: 77 Year

DRUGS (10)
  1. ROSUVASTATIN [Suspect]
     Active Substance: ROSUVASTATIN
     Indication: Product used for unknown indication
     Route: 065
  2. ZOLEDRONIC ACID [Suspect]
     Active Substance: ZOLEDRONIC ACID
     Indication: Osteoporosis
     Dosage: 5 MILLIGRAM, 1/YEAR
  3. EZETIMIBE [Suspect]
     Active Substance: EZETIMIBE
     Indication: Product used for unknown indication
     Route: 065
  4. LOSARTAN [Suspect]
     Active Substance: LOSARTAN
     Indication: Product used for unknown indication
     Route: 065
  5. AMDINOCILLIN PIVOXIL [Suspect]
     Active Substance: AMDINOCILLIN PIVOXIL
     Indication: Urinary tract infection
  6. PIPERACILLIN SODIUM\TAZOBACTAM SODIUM [Suspect]
     Active Substance: PIPERACILLIN SODIUM\TAZOBACTAM SODIUM
     Indication: Urinary tract infection
  7. CLARITHROMYCIN [Suspect]
     Active Substance: CLARITHROMYCIN
     Indication: Urinary tract infection
  8. SODIUM CHLORIDE [Suspect]
     Active Substance: SODIUM CHLORIDE
     Indication: Urinary tract infection
     Dosage: 3 LITRE, 1/DAY
  9. PREDNISOLONE [Concomitant]
     Active Substance: PREDNISOLONE
  10. DENOSUMAB [Concomitant]
     Active Substance: DENOSUMAB
     Indication: Osteoporosis

REACTIONS (20)
  - Tubulointerstitial nephritis [Unknown]
  - Sepsis associated acute kidney injury [Recovering/Resolving]
  - Renal impairment [Recovering/Resolving]
  - Renal impairment [Recovered/Resolved]
  - Influenza like illness [Unknown]
  - Back pain [Unknown]
  - Infection [Unknown]
  - Hypoalbuminaemia [Unknown]
  - Hyponatraemia [Unknown]
  - Haemoglobin decreased [Unknown]
  - Red blood cells urine positive [Unknown]
  - White blood cells urine positive [Unknown]
  - Proteinuria [Unknown]
  - Urinary tract infection [Unknown]
  - C-reactive protein increased [Recovering/Resolving]
  - Drug ineffective [Unknown]
  - Bladder catheterisation [Unknown]
  - Urine output decreased [Unknown]
  - Haemodialysis [Recovered/Resolved]
  - Biopsy kidney [Unknown]
